FAERS Safety Report 9381977 (Version 2)
Quarter: 2013Q3

REPORT INFORMATION
  Report Type: Spontaneous
  Country: JP (occurrence: JP)
  Receive Date: 20130703
  Receipt Date: 20130919
  Transmission Date: 20140515
  Serious: Yes (Other)
  Sender: FDA-Public Use
  Company Number: JP-B.I. PHARMACEUTICALS,INC./RIDGEFIELD-2013-BI-18377NB

PATIENT
  Age: 80 Year
  Sex: Male

DRUGS (7)
  1. TRAZENTA [Suspect]
     Indication: DIABETES MELLITUS
     Dosage: 5 MG
     Route: 048
     Dates: start: 20130528, end: 20130625
  2. WARFARIN [Suspect]
     Indication: ATRIAL FLUTTER
     Dosage: 2 MG
     Route: 048
     Dates: start: 20130619
  3. WARFARIN [Suspect]
     Dosage: 0.5 MG
     Route: 048
  4. FEBURIC [Concomitant]
     Indication: HYPERURICAEMIA
     Dosage: 20 MG
     Route: 048
  5. DIART [Concomitant]
     Indication: CARDIAC FAILURE
     Dosage: 60 MG
     Route: 048
  6. HOKUNALIN [Concomitant]
     Indication: ASTHMA
     Dosage: 2 MG
     Route: 062
  7. PURSENNID [Concomitant]
     Indication: CONSTIPATION
     Dosage: 12 MG
     Route: 048

REACTIONS (2)
  - Aspartate aminotransferase increased [Recovered/Resolved]
  - Alanine aminotransferase increased [Recovered/Resolved]
